FAERS Safety Report 8030294-5 (Version None)
Quarter: 2012Q1

REPORT INFORMATION
  Report Type: 
  Country: None (occurrence: None)
  Receive Date: 20120109
  Receipt Date: 20111228
  Transmission Date: 20120608
  Serious: Yes (Hospitalization)
  Sender: FDA-Public Use
  Company Number: KR-AMGEN-KORCT2011069972

PATIENT
  Age: 49 Year
  Sex: Female

DRUGS (7)
  1. RENALMIN [Concomitant]
     Dosage: UNK
     Dates: start: 20090522
  2. CINACALCET HYDROCHLORIDE [Suspect]
     Indication: HYPERPARATHYROIDISM SECONDARY
  3. RISMIC [Concomitant]
     Dosage: 10 MG, UNK
     Route: 048
     Dates: start: 20101201
  4. RENAGEL [Concomitant]
     Dosage: 2400 MG, UNK
     Route: 048
     Dates: start: 20090617, end: 20110502
  5. ZEMPLAR [Concomitant]
     Dosage: 5 MG/ML, UNK
     Route: 040
     Dates: start: 20090603
  6. RECORMON [Concomitant]
     Dosage: UNK
     Route: 040
     Dates: start: 20090520
  7. KALIMATE [Concomitant]
     Dosage: 10 G, UNK
     Route: 048
     Dates: start: 20110304, end: 20110402

REACTIONS (1)
  - SUDDEN HEARING LOSS [None]
